FAERS Safety Report 25892012 (Version 2)
Quarter: 2025Q4

REPORT INFORMATION
  Report Type: Report from Study
  Country: EG (occurrence: EG)
  Receive Date: 20251007
  Receipt Date: 20251013
  Transmission Date: 20260118
  Serious: No
  Sender: SANDOZ
  Company Number: EG-SANDOZ-SDZ2025EG068440

PATIENT
  Age: 11 Year
  Sex: Female

DRUGS (2)
  1. OMNITROPE [Suspect]
     Active Substance: SOMATROPIN
     Indication: Growth hormone deficiency
     Dosage: STRENGTH: 15MG
     Route: 058
  2. THYROXINE [Suspect]
     Active Substance: LEVOTHYROXINE
     Indication: Growth hormone deficiency
     Dosage: 50 MG ONCE DAILY BEFORE BREAKFAST
     Route: 065

REACTIONS (2)
  - Injection site pain [Unknown]
  - Drug administered in wrong device [Unknown]

NARRATIVE: CASE EVENT DATE: 20250901
